FAERS Safety Report 9878153 (Version 3)
Quarter: 2014Q1

REPORT INFORMATION
  Report Type: Report from Study
  Country: JP (occurrence: JP)
  Receive Date: 20140206
  Receipt Date: 20140331
  Transmission Date: 20141002
  Serious: Yes (Other)
  Sender: FDA-Public Use
  Company Number: PHHY2013JP074657

PATIENT
  Age: 39 Year
  Sex: Male

DRUGS (6)
  1. AFINITOR [Suspect]
     Indication: PANCREATIC NEUROENDOCRINE TUMOUR
     Dosage: 10 MG, DAILY
     Route: 048
     Dates: start: 20121025, end: 20130224
  2. AFINITOR [Suspect]
     Dosage: 10 MG, DAILY
     Route: 048
     Dates: start: 20130319, end: 20130814
  3. AFINITOR [Suspect]
     Dosage: 10 MG, DAILY
     Route: 048
     Dates: start: 20130828
  4. SANDOSTATIN LAR [Concomitant]
     Indication: PANCREATIC NEUROENDOCRINE TUMOUR
     Dosage: 20 MG, UNK
     Route: 030
     Dates: start: 20130117
  5. DIOVAN [Concomitant]
     Indication: PROPHYLAXIS
     Dosage: 80 MG, UNK
     Route: 048
     Dates: start: 20121218
  6. BERIZYM [Concomitant]
     Indication: GASTRITIS
     Dosage: 3 G, UNK
     Route: 048
     Dates: start: 20120918

REACTIONS (11)
  - Haemorrhoids [Recovered/Resolved]
  - Aspartate aminotransferase increased [Unknown]
  - Alanine aminotransferase increased [Unknown]
  - Hyperlipidaemia [Recovering/Resolving]
  - Low density lipoprotein increased [Unknown]
  - Blood cholesterol increased [Unknown]
  - Blood triglycerides increased [Unknown]
  - Hyperglycaemia [Recovering/Resolving]
  - Blood glucose increased [Unknown]
  - Hypertension [Recovering/Resolving]
  - Abdominal pain [Recovered/Resolved]
